FAERS Safety Report 8016095-2 (Version None)
Quarter: 2011Q4

REPORT INFORMATION
  Report Type: 
  Country: None (occurrence: None)
  Receive Date: 20111230
  Receipt Date: 20111221
  Transmission Date: 20120403
  Serious: Yes (Other)
  Sender: FDA-Public Use
  Company Number: GB-BRISTOL-MYERS SQUIBB COMPANY-16313090

PATIENT
  Age: 65 Year
  Sex: Male

DRUGS (1)
  1. ONGLYZA [Suspect]
     Dosage: LAST MONTH
     Dates: start: 20111101

REACTIONS (1)
  - AGGRESSION [None]
